FAERS Safety Report 9495603 (Version 2)
Quarter: 2014Q2

REPORT INFORMATION
  Report Type: Spontaneous
  Country: US (occurrence: US)
  Receive Date: 20130903
  Receipt Date: 20140422
  Transmission Date: 20141212
  Serious: Yes (Hospitalization)
  Sender: FDA-Public Use
  Company Number: US-BAYER-2013-105546

PATIENT
  Age: 30 Year
  Sex: Female
  Weight: 120 kg

DRUGS (7)
  1. MIRENA [Suspect]
     Dosage: 20 MCG/24HR, CONT
     Route: 015
     Dates: start: 20110811
  2. NORVASC [Concomitant]
  3. NEURONTIN [Concomitant]
     Dosage: UNK
     Dates: start: 20120802
  4. CEFTRIAXONE [Concomitant]
  5. DOXYCYCLINE [Concomitant]
  6. HYDROMORPHONE [Concomitant]
  7. ONDANSETRON [Concomitant]

REACTIONS (6)
  - Uterine perforation [None]
  - Medical device pain [None]
  - Infection [None]
  - Injury [None]
  - Abdominal pain [None]
  - Device issue [None]
